FAERS Safety Report 25548760 (Version 4)
Quarter: 2025Q3

REPORT INFORMATION
  Report Type: Report from Study
  Country: EU (occurrence: EU)
  Receive Date: 20250714
  Receipt Date: 20250924
  Transmission Date: 20251021
  Serious: Yes (Hospitalization)
  Sender: ASTELLAS
  Company Number: EU-ASTELLAS-2025-AER-037652

PATIENT
  Age: 67 Year
  Sex: Female

DRUGS (7)
  1. ENFORTUMAB VEDOTIN-EJFV [Suspect]
     Active Substance: ENFORTUMAB VEDOTIN-EJFV
     Indication: Transitional cell carcinoma
     Route: 065
     Dates: start: 20250623, end: 20250630
  2. PEMBROLIZUMAB [Suspect]
     Active Substance: PEMBROLIZUMAB
     Indication: Transitional cell carcinoma
     Route: 065
     Dates: start: 20250623, end: 20250623
  3. Tilidin/Naloxonhydrochlorid [Concomitant]
     Indication: Pain
     Dosage: 50MG/4MG, ONGOING (1-0-1)?ONGOING
     Route: 065
     Dates: start: 20250617
  4. CELECOXIB [Concomitant]
     Active Substance: CELECOXIB
     Indication: Pain
     Dosage: ONGOING (2-0-0)
     Route: 065
     Dates: start: 20250618
  5. PANTOPRAZOLE SODIUM [Concomitant]
     Active Substance: PANTOPRAZOLE SODIUM
     Indication: Prophylaxis
     Dosage: ONGOING (1-0-0)
     Route: 065
     Dates: start: 20250618
  6. MOVICOL [Concomitant]
     Active Substance: POLYETHYLENE GLYCOL 3350\POTASSIUM CHLORIDE\SODIUM BICARBONATE\SODIUM CHLORIDE
     Indication: Constipation
     Dosage: 1 BAG (1-0-0), ONGOING
     Route: 065
     Dates: start: 20250626
  7. Metoclopramid (MCP) [Concomitant]
     Indication: Nausea
     Route: 065
     Dates: start: 20250626

REACTIONS (1)
  - Hepatic enzyme increased [Recovered/Resolved]

NARRATIVE: CASE EVENT DATE: 20250702
